FAERS Safety Report 11417585 (Version 1)
Quarter: 2015Q3

REPORT INFORMATION
  Report Type: Spontaneous
  Country: US (occurrence: US)
  Receive Date: 20150825
  Receipt Date: 20150825
  Transmission Date: 20151125
  Serious: No
  Sender: FDA-Public Use
  Company Number: US-TARO-2015TAR00079

PATIENT
  Sex: Female
  Weight: 59.86 kg

DRUGS (5)
  1. SUPER B COMPLEX [Concomitant]
     Active Substance: CYANOCOBALAMIN\DEXPANTHENOL\NIACINAMIDE\PYRIDOXINE HYDROCHLORIDE\RIBOFLAVIN 5^-PHOSPHATE SODIUM\THIAMINE HYDROCHLORIDE\VITAMIN B COMPLEX
     Dosage: UNK
  2. LIPOFLAVANOID [Concomitant]
     Dosage: UNK
  3. LOVASTATIN. [Concomitant]
     Active Substance: LOVASTATIN
     Dosage: 10 MG, 1X/DAY
     Dates: start: 2012
  4. CLOBETASOL PROPIONATE OINTMENT USP 0.05% [Suspect]
     Active Substance: CLOBETASOL PROPIONATE
     Indication: PSORIASIS
     Dosage: UNK UNK, 1X/DAY
     Route: 061
     Dates: start: 20141121, end: 201501
  5. MUPIROCIN OINTMENT [Concomitant]
     Active Substance: MUPIROCIN
     Dosage: UNK, 1X/DAY
     Dates: end: 20141229

REACTIONS (4)
  - Scab [Not Recovered/Not Resolved]
  - Dry skin [Unknown]
  - Skin haemorrhage [Recovered/Resolved]
  - Application site erythema [Recovered/Resolved]
